FAERS Safety Report 22312845 (Version 1)
Quarter: 2023Q2

REPORT INFORMATION
  Report Type: Other
  Country: TR (occurrence: TR)
  Receive Date: 20230512
  Receipt Date: 20230512
  Transmission Date: 20230721
  Serious: Yes (Life-Threatening, Other)
  Sender: FDA-Public Use
  Company Number: TR-ASTELLAS-2023US014526

PATIENT
  Age: 70 Year
  Sex: Female

DRUGS (2)
  1. XOSPATA [Suspect]
     Active Substance: GILTERITINIB
     Indication: FLT3 gene mutation
     Dosage: 80 MG (40 MG X 2), ONCE DAILY
     Route: 048
     Dates: start: 20230310
  2. XOSPATA [Suspect]
     Active Substance: GILTERITINIB
     Indication: Acute myeloid leukaemia

REACTIONS (2)
  - Gastrointestinal haemorrhage [Recovering/Resolving]
  - Terminal ileitis [Recovering/Resolving]

NARRATIVE: CASE EVENT DATE: 20230422
